FAERS Safety Report 13701764 (Version 5)
Quarter: 2018Q1

REPORT INFORMATION
  Report Type: Report from Study
  Country: DE (occurrence: DE)
  Receive Date: 20170629
  Receipt Date: 20180212
  Transmission Date: 20180508
  Serious: Yes (Hospitalization, Other)
  Sender: FDA-Public Use
  Company Number: PHHY2017DE022105

PATIENT
  Age: 71 Year
  Sex: Male
  Weight: 90 kg

DRUGS (8)
  1. VOTRIENT [Suspect]
     Active Substance: PAZOPANIB HYDROCHLORIDE
     Indication: METASTATIC RENAL CELL CARCINOMA
     Dosage: 800 MG, QD
     Route: 048
     Dates: start: 20160730, end: 20160816
  2. ESCITALOPRAM [Concomitant]
     Active Substance: ESCITALOPRAM OXALATE
     Indication: DEPRESSION
     Dosage: 10 MG, TID
     Route: 048
     Dates: start: 2006
  3. RISPERIDON-RATIOPHARM [Concomitant]
     Indication: DEPRESSION
     Dosage: 2 MG, QD
     Route: 048
     Dates: start: 201609
  4. ASS-RATIOPHARM [Concomitant]
     Active Substance: ASPIRIN
     Indication: TRANSIENT ISCHAEMIC ATTACK
     Dosage: 100 MG, QD
     Route: 048
     Dates: start: 201605
  5. QUETIAPIN-RATIOPHARM [Concomitant]
     Indication: DEPRESSION
     Dosage: 100 MG, BID
     Route: 048
     Dates: start: 2006
  6. MIRTAZAPIN RATIOPHARM [Concomitant]
     Indication: DEPRESSION
     Dosage: 30 MG, QD
     Route: 048
     Dates: start: 201609
  7. VOTRIENT [Suspect]
     Active Substance: PAZOPANIB HYDROCHLORIDE
     Dosage: 400 MG, QD
     Route: 048
     Dates: start: 20160817, end: 20170602
  8. TAMSULOSIN RATIOPHARM [Concomitant]
     Indication: BENIGN PROSTATIC HYPERPLASIA
     Dosage: 0.4 MG, QD
     Route: 048
     Dates: start: 2011

REACTIONS (8)
  - Pneumonia [Recovered/Resolved]
  - Hair colour changes [Not Recovered/Not Resolved]
  - C-reactive protein increased [Recovered/Resolved]
  - Haemoptysis [Recovered/Resolved]
  - Bronchial obstruction [Recovered/Resolved]
  - C-reactive protein increased [Recovered/Resolved]
  - Hypertension [Recovered/Resolved]
  - Headache [Recovered/Resolved]

NARRATIVE: CASE EVENT DATE: 20160811
